FAERS Safety Report 6486761-9 (Version None)
Quarter: 2009Q4

REPORT INFORMATION
  Report Type: 
  Country: None (occurrence: None)
  Receive Date: 20091210
  Receipt Date: 20091201
  Transmission Date: 20100525
  Serious: Yes (Other)
  Sender: FDA-Public Use
  Company Number: US-JNJFOC-20091101968

PATIENT
  Sex: Male
  Weight: 73.94 kg

DRUGS (7)
  1. REMICADE [Suspect]
     Indication: CROHN'S DISEASE
     Dosage: FREQUENCY: EVERY 8-12 WEEKS
     Route: 042
     Dates: start: 20020101
  2. COLESTID [Concomitant]
     Indication: DIARRHOEA
  3. PROTONIX [Concomitant]
     Indication: GASTROOESOPHAGEAL REFLUX DISEASE
     Route: 048
  4. WARFARIN SODIUM [Concomitant]
     Indication: THROMBOSIS
  5. LOTREL [Concomitant]
     Indication: HYPERTENSION
  6. HOODIA [Concomitant]
  7. SULFASALAZINE [Concomitant]
     Indication: CROHN'S DISEASE

REACTIONS (1)
  - PROSTATE CANCER [None]
